FAERS Safety Report 8202697-7 (Version None)
Quarter: 2012Q1

REPORT INFORMATION
  Report Type: 
  Country: None (occurrence: None)
  Receive Date: 20120312
  Receipt Date: 20120301
  Transmission Date: 20120608
  Serious: Yes (Other)
  Sender: FDA-Public Use
  Company Number: US-ASTRAZENECA-2012SE14567

PATIENT
  Sex: Male

DRUGS (3)
  1. METOPROLOL SUCCINATE [Concomitant]
  2. BRILINTA [Suspect]
     Route: 048
  3. ASPIRIN [Suspect]

REACTIONS (2)
  - DRUG DOSE OMISSION [None]
  - ATRIOVENTRICULAR BLOCK SECOND DEGREE [None]
